FAERS Safety Report 8370116-6 (Version None)
Quarter: 2012Q1

REPORT INFORMATION
  Report Type: 
  Country: None (occurrence: None)
  Receive Date: 20120323
  Receipt Date: 20110809
  Transmission Date: 20120608
  Serious: Yes (Other)
  Sender: FDA-Public Use
  Company Number: 163-21880-11081231

PATIENT
  Age: 78 Year
  Sex: Female

DRUGS (1)
  1. REVLIMID [Suspect]
     Indication: MYELODYSPLASTIC SYNDROME
     Dosage: 10 MG, AT BEDTIME, PO
     Route: 048
     Dates: start: 20110601

REACTIONS (3)
  - LOCALISED INFECTION [None]
  - URINARY TRACT INFECTION [None]
  - MUSCLE SPASMS [None]
